FAERS Safety Report 5912395-8 (Version None)
Quarter: 2008Q4

REPORT INFORMATION
  Report Type: 
  Country: None (occurrence: None)
  Receive Date: 20081007
  Receipt Date: 20081007
  Transmission Date: 20090506
  Serious: Yes (Hospitalization)
  Sender: FDA-Public Use
  Company Number: None

PATIENT
  Age: 54 Year
  Sex: Female

DRUGS (2)
  1. LISINOPRIL [Suspect]
     Dosage: 10 MG EVERY DAY PO
     Route: 048
     Dates: start: 20041221, end: 20081001
  2. OXALIPLATIN [Suspect]
     Dosage: 140 MG ONCE IV
     Route: 042
     Dates: start: 20080930, end: 20080930

REACTIONS (1)
  - ANGIOEDEMA [None]
